FAERS Safety Report 4374423-3 (Version None)
Quarter: 2004Q2

REPORT INFORMATION
  Report Type: 
  Country: None (occurrence: None)
  Receive Date: 20040603
  Receipt Date: 20040518
  Transmission Date: 20050107
  Serious: Yes (Other)
  Sender: FDA-Public Use
  Company Number: DE_040513531

PATIENT
  Age: 79 Year
  Sex: Female
  Weight: 59.4212 kg

DRUGS (8)
  1. GEMZAR [Suspect]
     Indication: PANCREATIC CARCINOMA
     Dosage: 1560 MG
     Dates: start: 20030522
  2. FLUOROURACIL [Suspect]
     Indication: PANCREATIC CARCINOMA
     Dosage: 1170 MG
     Dates: start: 20030522
  3. FOLINIC ACID [Suspect]
     Indication: PANCREATIC CARCINOMA
     Dosage: 312 MG
     Dates: start: 20030522
  4. ACERCOMP [Concomitant]
  5. TOREM (TORASEMIDE) [Concomitant]
  6. NEBILET (NEBIVOLOL HYDROCHLORIDE) [Concomitant]
  7. DUROGESIC (FENTANYL) [Concomitant]
  8. ACTRAPID (INSULIN) [Concomitant]

REACTIONS (1)
  - TOOTH EROSION [None]
